FAERS Safety Report 8411768 (Version 9)
Quarter: 2013Q2

REPORT INFORMATION
  Report Type: Spontaneous
  Country: US (occurrence: US)
  Receive Date: 20120217
  Receipt Date: 20130410
  Transmission Date: 20140414
  Serious: Yes (Hospitalization, Other)
  Sender: FDA-Public Use
  Company Number: US-009507513-1202USA02448

PATIENT
  Sex: Female
  Weight: 83.45 kg

DRUGS (3)
  1. FOSAMAX PLUS D [Suspect]
     Indication: OSTEOPOROSIS
     Dosage: 70 MG, QW
     Route: 048
  2. FOSAMAX [Suspect]
     Indication: OSTEOPOROSIS
     Dosage: 70 MG, QW
     Route: 048
  3. FOSAMAX [Suspect]
     Indication: OSTEOPOROSIS
     Dosage: 70 MG, UNK
     Route: 048
     Dates: start: 20110114

REACTIONS (55)
  - Femur fracture [Unknown]
  - Fall [Unknown]
  - Anaemia postoperative [Unknown]
  - Procedural haemorrhage [Unknown]
  - Fall [Unknown]
  - Hiatus hernia [Unknown]
  - Radius fracture [Unknown]
  - Stress [Unknown]
  - Hepatobiliary scan abnormal [Unknown]
  - Chest pain [Unknown]
  - Hypothyroidism [Unknown]
  - Accelerated hypertension [Unknown]
  - Hypokalaemia [Unknown]
  - Fall [Unknown]
  - Open reduction of fracture [Unknown]
  - Abdominal pain [Unknown]
  - Dizziness [Unknown]
  - Vertigo [Not Recovered/Not Resolved]
  - Vitamin D deficiency [Unknown]
  - Low turnover osteopathy [Unknown]
  - Type 2 diabetes mellitus [Unknown]
  - Pulmonary granuloma [Unknown]
  - Acquired diaphragmatic eventration [Unknown]
  - Hypertension [Not Recovered/Not Resolved]
  - Transient ischaemic attack [Unknown]
  - Dyslipidaemia [Unknown]
  - Menopause [Unknown]
  - Hypertensive heart disease [Unknown]
  - Bundle branch block left [Unknown]
  - Glaucoma [Unknown]
  - Osteoarthritis [Unknown]
  - Hypotension [Unknown]
  - Post procedural constipation [Unknown]
  - Balance disorder [Unknown]
  - Osteopenia [Unknown]
  - Syncope [Unknown]
  - Aortic disorder [Unknown]
  - Helicobacter gastritis [Unknown]
  - Tricuspid valve incompetence [Unknown]
  - Mitral valve incompetence [Unknown]
  - Tooth disorder [Unknown]
  - Tooth disorder [Unknown]
  - Tooth fracture [Unknown]
  - Depression [Unknown]
  - Chest pain [Unknown]
  - Generalised anxiety disorder [Unknown]
  - Confusional state [Unknown]
  - Tooth fracture [Unknown]
  - Oral disorder [Unknown]
  - Tooth impacted [Unknown]
  - Dental caries [Recovering/Resolving]
  - Gastrooesophageal reflux disease [Not Recovered/Not Resolved]
  - Drug ineffective [Unknown]
  - Abdominal pain upper [Not Recovered/Not Resolved]
  - Oesophagitis [Unknown]
